FAERS Safety Report 18016302 (Version 3)
Quarter: 2023Q1

REPORT INFORMATION
  Report Type: Spontaneous
  Country: GR (occurrence: GR)
  Receive Date: 20200713
  Receipt Date: 20230103
  Transmission Date: 20230417
  Serious: Yes (Other)
  Sender: FDA-Public Use
  Company Number: GR-PFIZER INC-2020260381

PATIENT
  Age: 2 Year
  Sex: Female
  Weight: 35 kg

DRUGS (1)
  1. GENOTROPIN [Suspect]
     Active Substance: SOMATROPIN
     Indication: Prader-Willi syndrome
     Dosage: 3 MG, WEEKLY (3 MG / 7 DAYS)
     Route: 058
     Dates: start: 20190104, end: 201903

REACTIONS (5)
  - Respiratory arrest [Unknown]
  - Apnoea [Recovered/Resolved]
  - Adenoidal hypertrophy [Unknown]
  - Rhinitis [Unknown]
  - Snoring [Unknown]

NARRATIVE: CASE EVENT DATE: 20190628
